FAERS Safety Report 9401641 (Version 1)
Quarter: 2013Q3

REPORT INFORMATION
  Report Type: Spontaneous
  Country: US (occurrence: US)
  Receive Date: 20130716
  Receipt Date: 20130716
  Transmission Date: 20140515
  Serious: Yes (Hospitalization)
  Sender: FDA-Public Use
  Company Number: US-BIOGENIDEC-2013BI062397

PATIENT
  Sex: Female

DRUGS (10)
  1. TECFIDERA [Suspect]
     Indication: PRODUCT USED FOR UNKNOWN INDICATION
     Route: 048
  2. TECFIDERA [Suspect]
     Indication: PRODUCT USED FOR UNKNOWN INDICATION
     Route: 048
  3. CONCERTA [Concomitant]
  4. CYMBALTA [Concomitant]
  5. AMBIEN [Concomitant]
  6. RITALIN [Concomitant]
  7. LISINOPRIL [Concomitant]
  8. OMEGA 3 [Concomitant]
  9. VITAMIN D [Concomitant]
  10. PRENATAL [Concomitant]

REACTIONS (2)
  - Viral infection [Unknown]
  - Multiple sclerosis relapse [Unknown]
